FAERS Safety Report 7949062-5 (Version None)
Quarter: 2011Q4

REPORT INFORMATION
  Report Type: 
  Country: None (occurrence: None)
  Receive Date: 20111130
  Receipt Date: 20110928
  Transmission Date: 20120403
  Serious: No
  Sender: FDA-Public Use
  Company Number: US-BRISTOL-MYERS SQUIBB COMPANY-16102139

PATIENT
  Age: 60 Year
  Sex: Female
  Weight: 95 kg

DRUGS (1)
  1. KOMBIGLYZE XR [Suspect]
     Indication: TYPE 2 DIABETES MELLITUS
     Dosage: 1 DF = 2.5/1000 UNM,2 TABS QD,DOSE INCREASED TO BID + BACK TO NORMAL DOSE,PRESCRIPTION#105120259769
     Route: 048
     Dates: start: 20110301

REACTIONS (1)
  - DIARRHOEA [None]
